FAERS Safety Report 21470056 (Version 1)
Quarter: 2022Q4

REPORT INFORMATION
  Report Type: Spontaneous
  Country: US (occurrence: US)
  Receive Date: 20221018
  Receipt Date: 20221018
  Transmission Date: 20230113
  Serious: No
  Sender: FDA-Public Use
  Company Number: US-TAKEDA-2022TUS073697

PATIENT
  Sex: Female
  Weight: 50 kg

DRUGS (2)
  1. VYVANSE [Suspect]
     Active Substance: LISDEXAMFETAMINE DIMESYLATE
     Indication: Attention deficit hyperactivity disorder
     Dosage: 20 MILLIGRAM
     Route: 048
     Dates: start: 2022
  2. FLOVENT [Concomitant]
     Active Substance: FLUTICASONE PROPIONATE
     Indication: Multiple allergies

REACTIONS (4)
  - Abdominal discomfort [Unknown]
  - Agitation [Unknown]
  - Abdominal pain upper [Unknown]
  - Inappropriate schedule of product administration [Unknown]
